FAERS Safety Report 21242345 (Version 2)
Quarter: 2022Q3

REPORT INFORMATION
  Report Type: Spontaneous
  Country: US (occurrence: US)
  Receive Date: 20220823
  Receipt Date: 20220912
  Transmission Date: 20221027
  Serious: Yes (Hospitalization)
  Sender: FDA-Public Use
  Company Number: US-GLAXOSMITHKLINE-US2022121230

PATIENT
  Age: 44 Year
  Sex: Female

DRUGS (2)
  1. ZEJULA [Suspect]
     Active Substance: NIRAPARIB
     Indication: Ovarian cancer
     Dosage: 300 MG, QD
     Dates: start: 20220803
  2. ZEJULA [Suspect]
     Active Substance: NIRAPARIB
     Dosage: 300 MG, QD (PM)
     Dates: start: 20220812, end: 20220828

REACTIONS (5)
  - Platelet count decreased [Unknown]
  - Nausea [Unknown]
  - Pain [Unknown]
  - Blood magnesium decreased [Unknown]
  - Blood potassium decreased [Unknown]

NARRATIVE: CASE EVENT DATE: 20220801
